FAERS Safety Report 9883333 (Version 1)
Quarter: 2014Q1

REPORT INFORMATION
  Report Type: Report from Study
  Country: US (occurrence: US)
  Receive Date: 20140210
  Receipt Date: 20140210
  Transmission Date: 20141002
  Serious: Yes (Death)
  Sender: FDA-Public Use
  Company Number: US-ROCHE-1324015

PATIENT
  Sex: Female

DRUGS (3)
  1. AVASTIN [Suspect]
     Indication: GASTRIC CANCER
     Route: 042
     Dates: start: 20120612, end: 20120612
  2. 5-FU [Concomitant]
  3. CISPLATIN [Concomitant]

REACTIONS (2)
  - Disease progression [Fatal]
  - Off label use [Unknown]
